FAERS Safety Report 9597069 (Version 4)
Quarter: 2014Q1

REPORT INFORMATION
  Report Type: Report from Study
  Country: AU (occurrence: AU)
  Receive Date: 20131004
  Receipt Date: 20140303
  Transmission Date: 20141002
  Serious: Yes (Hospitalization, Other)
  Sender: FDA-Public Use
  Company Number: AU-PFIZER INC-2013274360

PATIENT
  Age: 57 Year
  Sex: Female
  Weight: 95 kg

DRUGS (13)
  1. TOFACITINIB CITRATE [Suspect]
     Indication: RHEUMATOID ARTHRITIS
     Dosage: 10 MG, 2X/DAY
     Route: 048
     Dates: start: 20110823, end: 20130814
  2. PREDNISONE [Concomitant]
     Indication: RHEUMATOID ARTHRITIS
     Dosage: UNK
     Dates: start: 20120325
  3. PERINDOPRIL [Concomitant]
     Indication: HYPERTENSION
     Dosage: UNK
     Dates: start: 20120716, end: 20130922
  4. THYROXINE [Concomitant]
     Indication: HYPOTHYROIDISM
     Dosage: UNK
     Dates: start: 200808
  5. PANTOPRAZOLE [Concomitant]
     Indication: GASTROOESOPHAGEAL REFLUX DISEASE
     Dosage: UNK
     Dates: start: 200302, end: 20130922
  6. SERTRALINE [Concomitant]
     Indication: DEPRESSION
     Dosage: UNK
     Dates: start: 200111
  7. FOLIC ACID [Concomitant]
     Indication: RHEUMATOID ARTHRITIS
     Dosage: UNK
     Dates: start: 201203, end: 20130922
  8. FERROUS SULFATE [Concomitant]
     Indication: ANAEMIA
     Dosage: UNK
     Dates: start: 199507, end: 20130922
  9. PANADOL OSTEO [Concomitant]
     Indication: RHEUMATOID ARTHRITIS
     Dosage: UNK
     Dates: start: 200007
  10. SALBUTAMOL [Concomitant]
     Indication: ASTHMA
     Dosage: UNK
     Dates: start: 198707, end: 20130922
  11. MELOXICAM [Concomitant]
     Indication: RHEUMATOID ARTHRITIS
     Dosage: UNK
     Dates: start: 200907, end: 20130922
  12. VITAMIN D [Concomitant]
     Indication: SUPPLEMENTATION THERAPY
     Dosage: UNK
     Dates: start: 20090920, end: 20130922
  13. METHOTREXATE [Concomitant]
     Indication: RHEUMATOID ARTHRITIS
     Dosage: UNK
     Dates: start: 20110213, end: 20130922

REACTIONS (1)
  - Acute promyelocytic leukaemia [Recovered/Resolved]
